FAERS Safety Report 17567379 (Version 1)
Quarter: 2020Q1

REPORT INFORMATION
  Report Type: Spontaneous
  Country: US (occurrence: US)
  Receive Date: 20200320
  Receipt Date: 20200320
  Transmission Date: 20200409
  Serious: Yes (Other)
  Sender: FDA-Public Use
  Company Number: US-VERTEX PHARMACEUTICALS-2020-000219

PATIENT
  Age: 13 Year
  Sex: Female

DRUGS (13)
  1. RANITIDINE. [Concomitant]
     Active Substance: RANITIDINE
  2. SMZ-TMP [Concomitant]
     Active Substance: SULFAMETHOXAZOLE\TRIMETHOPRIM
  3. CREON [Concomitant]
     Active Substance: PANCRELIPASE AMYLASE\PANCRELIPASE LIPASE\PANCRELIPASE PROTEASE
  4. METHYLPRED [Concomitant]
     Active Substance: METHYLPREDNISOLONE
  5. PROVENTIL HFA [SALBUTAMOL] [Concomitant]
  6. CLINDAMYCIN. [Concomitant]
     Active Substance: CLINDAMYCIN
  7. PREDNISONE. [Concomitant]
     Active Substance: PREDNISONE
  8. AMOXCLAV HEXAL [Concomitant]
  9. VITAMIN D3 [Concomitant]
     Active Substance: CHOLECALCIFEROL
  10. TRIKAFTA [Suspect]
     Active Substance: ELEXACAFTOR\IVACAFTOR\TEZACAFTOR
     Indication: CYSTIC FIBROSIS
     Dosage: 2 TAB (100 MG ELEXACAFTOR/ 50 MG TEZACAFTOR/ 75 MG IVACAFTOR) PM AND 1 TAB (150 MG IVACAFTOR) PM
     Route: 048
     Dates: start: 20191211
  11. CEFDINIR. [Concomitant]
     Active Substance: CEFDINIR
  12. FLUTICASONE. [Concomitant]
     Active Substance: FLUTICASONE
     Route: 045
  13. APAP [Concomitant]
     Active Substance: ACETAMINOPHEN

REACTIONS (6)
  - Adenotonsillectomy [Unknown]
  - Feeling abnormal [Unknown]
  - Headache [Not Recovered/Not Resolved]
  - Abdominal discomfort [Unknown]
  - Sinus operation [Unknown]
  - Bronchoscopy [Unknown]

NARRATIVE: CASE EVENT DATE: 20200105
